FAERS Safety Report 10300609 (Version 6)
Quarter: 2014Q4

REPORT INFORMATION
  Report Type: Spontaneous
  Country: CA (occurrence: CA)
  Receive Date: 20140714
  Receipt Date: 20141116
  Transmission Date: 20150528
  Serious: Yes (Other)
  Sender: FDA-Public Use
  Company Number: CA-ROCHE-1432774

PATIENT
  Age: 63 Year
  Sex: Female

DRUGS (5)
  1. XOLAIR [Suspect]
     Active Substance: OMALIZUMAB
     Indication: CHRONIC SPONTANEOUS URTICARIA
     Route: 058
     Dates: start: 20110421
  2. CETIRIZINE [Concomitant]
     Active Substance: CETIRIZINE HYDROCHLORIDE
  3. XOLAIR [Suspect]
     Active Substance: OMALIZUMAB
     Indication: OFF LABEL USE
     Route: 058
     Dates: start: 201402
  4. XOLAIR [Suspect]
     Active Substance: OMALIZUMAB
     Route: 058
     Dates: start: 20140605
  5. XOLAIR [Suspect]
     Active Substance: OMALIZUMAB
     Route: 058
     Dates: start: 201304

REACTIONS (21)
  - Anxiety [Unknown]
  - Eye swelling [Unknown]
  - Lip swelling [Unknown]
  - Nervousness [Unknown]
  - Urticaria [Unknown]
  - Musculoskeletal stiffness [Unknown]
  - Off label use [Unknown]
  - Fatigue [Unknown]
  - Spinal fracture [Unknown]
  - Drug ineffective [Unknown]
  - Feeling abnormal [Unknown]
  - Disturbance in attention [Unknown]
  - Dysphonia [Unknown]
  - Malaise [Unknown]
  - Pruritus [Recovering/Resolving]
  - Chest discomfort [Unknown]
  - Initial insomnia [Unknown]
  - Middle insomnia [Unknown]
  - Mood altered [Unknown]
  - Frustration [Unknown]
  - Osteoporosis [Unknown]

NARRATIVE: CASE EVENT DATE: 20130729
